FAERS Safety Report 7949291-0 (Version None)
Quarter: 2011Q4

REPORT INFORMATION
  Report Type: 
  Country: None (occurrence: None)
  Receive Date: 20111130
  Receipt Date: 20111117
  Transmission Date: 20120403
  Serious: Yes (Other)
  Sender: FDA-Public Use
  Company Number: NZ-ROCHE-1014252

PATIENT
  Sex: Male

DRUGS (4)
  1. RIBAVIRIN [Suspect]
     Indication: HEPATITIS C
     Route: 048
  2. PEGASYS [Suspect]
     Indication: HEPATITIS C
     Route: 058
  3. RIBAVIRIN [Suspect]
     Route: 048
  4. INTERFERON ALFA-2A [Suspect]
     Indication: HEPATITIS C
     Dates: start: 19940101

REACTIONS (3)
  - HEPATIC NEOPLASM MALIGNANT [None]
  - NO THERAPEUTIC RESPONSE [None]
  - ANAEMIA [None]
